FAERS Safety Report 7405004-2 (Version None)
Quarter: 2011Q2

REPORT INFORMATION
  Report Type: 
  Country: None (occurrence: None)
  Receive Date: 20110411
  Receipt Date: 20110329
  Transmission Date: 20111010
  Serious: Yes (Hospitalization)
  Sender: FDA-Public Use
  Company Number: IL-JNJFOC-20110403168

PATIENT
  Age: 54 Year
  Sex: Female

DRUGS (3)
  1. SIMVASTATIN [Interacting]
     Route: 065
  2. SIMVASTATIN [Interacting]
     Indication: HYPERCHOLESTEROLAEMIA
     Dosage: APPROXIMATELY FOR A YEAR
     Route: 065
  3. KETOCONAZOLE [Suspect]
     Indication: PRODUCT USED FOR UNKNOWN INDICATION
     Route: 065

REACTIONS (4)
  - OFF LABEL USE [None]
  - INFLUENZA LIKE ILLNESS [None]
  - RHABDOMYOLYSIS [None]
  - DRUG INTERACTION [None]
